FAERS Safety Report 24004467 (Version 1)
Quarter: 2024Q2

REPORT INFORMATION
  Report Type: Spontaneous
  Country: BR (occurrence: BR)
  Receive Date: 20240624
  Receipt Date: 20240624
  Transmission Date: 20240715
  Serious: Yes (Other)
  Sender: FDA-Public Use
  Company Number: BR-Accord-430907

PATIENT
  Age: 49 Year
  Sex: Female

DRUGS (2)
  1. METHOTREXATE [Suspect]
     Active Substance: METHOTREXATE
     Indication: Arthropathy
     Dosage: 10-20 MG/WEEK, FROM AUGUST 2020 TO JULY 2021
     Dates: start: 202008, end: 202107
  2. METHOTREXATE [Suspect]
     Active Substance: METHOTREXATE
     Indication: Arthropathy
     Dosage: 10-20 MG/WEEK, FROM AUGUST 2020 TO JULY 2021
     Dates: start: 202008, end: 202107

REACTIONS (1)
  - Pulmonary paracoccidioidomycosis [Recovered/Resolved]

NARRATIVE: CASE EVENT DATE: 20210501
